FAERS Safety Report 12202964 (Version 1)
Quarter: 2016Q1

REPORT INFORMATION
  Report Type: Report from Study
  Country: US (occurrence: US)
  Receive Date: 20160323
  Receipt Date: 20160323
  Transmission Date: 20160526
  Serious: Yes (Other)
  Sender: FDA-Public Use
  Company Number: US-AMGEN-USASP2016032994

PATIENT
  Age: 52 Year
  Sex: Female

DRUGS (1)
  1. ENBREL [Suspect]
     Active Substance: ETANERCEPT
     Indication: RHEUMATOID ARTHRITIS
     Dosage: UNK, QWK
     Route: 065

REACTIONS (8)
  - Sinusitis [Unknown]
  - Burn infection [Unknown]
  - Diabetes mellitus [Unknown]
  - Myalgia [Unknown]
  - Bronchitis [Unknown]
  - Malaise [Unknown]
  - Thermal burn [Unknown]
  - Visual impairment [Unknown]

NARRATIVE: CASE EVENT DATE: 201603
